FAERS Safety Report 24956619 (Version 6)
Quarter: 2025Q3

REPORT INFORMATION
  Report Type: Spontaneous
  Country: CO (occurrence: CO)
  Receive Date: 20250211
  Receipt Date: 20250701
  Transmission Date: 20251020
  Serious: Yes (Life-Threatening, Hospitalization, Other)
  Sender: SANDOZ
  Company Number: CO-002147023-NVSC2020CO077223

PATIENT
  Age: 41 Year
  Sex: Female
  Weight: 74 kg

DRUGS (8)
  1. ALBUTEROL [Suspect]
     Active Substance: ALBUTEROL
     Dosage: UNK, BID
     Route: 065
  2. ALBUTEROL [Suspect]
     Active Substance: ALBUTEROL
     Indication: Asthma
     Route: 048
  3. XOLAIR [Suspect]
     Active Substance: OMALIZUMAB
     Indication: Asthma
     Dosage: 300 MG, QMO
     Route: 058
     Dates: start: 20170329, end: 20250207
  4. XOLAIR [Suspect]
     Active Substance: OMALIZUMAB
     Dosage: 300 MG, QMO
     Route: 058
     Dates: start: 20250207
  5. XOLAIR [Suspect]
     Active Substance: OMALIZUMAB
     Dosage: 300 MG, QMO
     Route: 058
     Dates: start: 202410
  6. XOLAIR [Suspect]
     Active Substance: OMALIZUMAB
     Dosage: 300 MG, QMO
     Route: 058
     Dates: end: 202410
  7. XOLAIR [Suspect]
     Active Substance: OMALIZUMAB
     Route: 065
  8. SYMBICORT [Concomitant]
     Active Substance: BUDESONIDE\FORMOTEROL FUMARATE DIHYDRATE
     Indication: Asthma
     Dosage: UNK, Q12H
     Route: 048

REACTIONS (25)
  - Illness [Unknown]
  - Cough [Not Recovered/Not Resolved]
  - Chest pain [Unknown]
  - Asphyxia [Unknown]
  - Asthmatic crisis [Unknown]
  - Appendix disorder [Unknown]
  - Abdominal adhesions [Unknown]
  - Choking [Unknown]
  - Oropharyngeal pain [Recovered/Resolved]
  - Pruritus [Recovered/Resolved]
  - Malaise [Unknown]
  - Rhinitis [Unknown]
  - Condition aggravated [Unknown]
  - Pharyngitis [Not Recovered/Not Resolved]
  - Sneezing [Recovered/Resolved]
  - Oropharyngeal pain [Not Recovered/Not Resolved]
  - Nasal congestion [Unknown]
  - Fatigue [Unknown]
  - Asthma [Unknown]
  - Wheezing [Not Recovered/Not Resolved]
  - Urticaria [Not Recovered/Not Resolved]
  - Hypersensitivity [Recovered/Resolved]
  - Hypersensitivity [Unknown]
  - Product distribution issue [Not Recovered/Not Resolved]
  - Product dose omission issue [Unknown]

NARRATIVE: CASE EVENT DATE: 20200301
